FAERS Safety Report 5090108-2 (Version None)
Quarter: 2006Q3

REPORT INFORMATION
  Report Type: 
  Country: None (occurrence: None)
  Receive Date: 20060801
  Receipt Date: 20060412
  Transmission Date: 20061208
  Serious: Yes (Life-Threatening, Hospitalization, Disabling)
  Sender: FDA-Public Use
  Company Number: OMPQ-PR-0603S-0204

PATIENT
  Age: 71 Year
  Sex: Male

DRUGS (3)
  1. OMNIPAQUE 240 [Suspect]
     Indication: ANEURYSM
     Dosage: 100 ML, SINGLE DOSE, IV
     Route: 042
     Dates: start: 20060314, end: 20060314
  2. DIPHENHYDRAMINE HCL (BENADRYL) [Concomitant]
  3. METHYLPREDNISOLONE ACETATE [Concomitant]

REACTIONS (1)
  - ANAPHYLACTOID SHOCK [None]
